FAERS Safety Report 4317938-6 (Version None)
Quarter: 2004Q1

REPORT INFORMATION
  Report Type: 
  Country: None (occurrence: None)
  Receive Date: 20040316
  Receipt Date: 20040309
  Transmission Date: 20041129
  Serious: Yes (Other)
  Sender: FDA-Public Use
  Company Number: US-GLAXOSMITHKLINE-A0502005A

PATIENT
  Age: 36 Year
  Sex: Male

DRUGS (5)
  1. LAMIVUDINE [Suspect]
     Indication: HIV INFECTION
     Route: 048
  2. NORVIR [Suspect]
     Indication: HIV INFECTION
     Route: 048
  3. KALETRA [Suspect]
     Indication: HIV INFECTION
     Route: 048
  4. TENOFOVIR [Suspect]
     Indication: HIV INFECTION
     Route: 048
  5. ATAZANAVIR [Suspect]
     Indication: HIV INFECTION
     Route: 048

REACTIONS (5)
  - HYPERBILIRUBINAEMIA [None]
  - MENINGITIS CRYPTOCOCCAL [None]
  - NAUSEA [None]
  - VOMITING [None]
  - WEIGHT DECREASED [None]
